FAERS Safety Report 7915321-5 (Version None)
Quarter: 2011Q4

REPORT INFORMATION
  Report Type: 
  Country: None (occurrence: None)
  Receive Date: 20111115
  Receipt Date: 20111101
  Transmission Date: 20120403
  Serious: Yes (Hospitalization)
  Sender: FDA-Public Use
  Company Number: PHHO2004US04560

PATIENT
  Sex: Female
  Weight: 57.5 kg

DRUGS (11)
  1. ABELCET [Suspect]
  2. HYDREA [Concomitant]
     Dosage: UNK
  3. GLEEVEC [Suspect]
     Indication: ACUTE MYELOID LEUKAEMIA
     Dosage: 400 MG, QD
     Route: 048
     Dates: start: 20040314, end: 20040323
  4. CYTARABINE [Suspect]
     Indication: ACUTE MYELOID LEUKAEMIA
     Dosage: UNK
  5. ACYCLOVIR [Concomitant]
     Dosage: UNK
  6. VANCOMYCIN [Concomitant]
     Dosage: UNK
  7. DAUNORUBICIN HCL [Suspect]
     Indication: ACUTE MYELOID LEUKAEMIA
     Dosage: UNK
  8. VORICONAZOLE [Interacting]
  9. OXYCODONE HCL [Concomitant]
  10. ZOSYN [Concomitant]
     Dosage: UNK
  11. GENTAMICIN [Concomitant]
     Dosage: UNK

REACTIONS (13)
  - ASPERGILLOSIS [None]
  - WHEEZING [None]
  - PYREXIA [None]
  - HYPOXIA [None]
  - CHEST DISCOMFORT [None]
  - BLOOD BILIRUBIN INCREASED [None]
  - BLOOD ALBUMIN DECREASED [None]
  - PULMONARY OEDEMA [None]
  - NEUTROPENIA [None]
  - RENAL IMPAIRMENT [None]
  - DYSPNOEA [None]
  - DRUG INTERACTION [None]
  - OEDEMA PERIPHERAL [None]
